FAERS Safety Report 25522440 (Version 1)
Quarter: 2025Q3

REPORT INFORMATION
  Report Type: Spontaneous
  Country: EU (occurrence: EU)
  Receive Date: 20250707
  Receipt Date: 20250707
  Transmission Date: 20251020
  Serious: No
  Sender: ALKEM
  Company Number: EU-ALKEM LABORATORIES LIMITED-FR-ALKEM-2025-04286

PATIENT
  Sex: Female

DRUGS (3)
  1. DRONABINOL [Suspect]
     Active Substance: DRONABINOL
     Indication: Neuralgia
     Dosage: 7.5 MILLIGRAM, BID
     Route: 065
  2. DULOXETINE [Concomitant]
     Active Substance: DULOXETINE
     Indication: Neuropathy peripheral
     Dosage: 120 MILLIGRAM, QD  (60 MG: 1-0-1)
     Route: 065
     Dates: start: 202407
  3. GABAPENTIN [Concomitant]
     Active Substance: GABAPENTIN
     Indication: Neuropathy peripheral
     Dosage: 3600 MILLIGRAM, QD (600 MG: 2-2-2)
     Route: 065
     Dates: start: 2023

REACTIONS (1)
  - Pain [Unknown]
